FAERS Safety Report 6086823-4 (Version None)
Quarter: 2009Q1

REPORT INFORMATION
  Report Type: 
  Country: None (occurrence: None)
  Receive Date: 20090223
  Receipt Date: 20090212
  Transmission Date: 20090719
  Serious: Yes (Other)
  Sender: FDA-Public Use
  Company Number: GB-PFIZER INC-2008051506

PATIENT

DRUGS (3)
  1. SOMATROPIN [Suspect]
     Indication: HYPOPITUITARISM
     Dosage: 0.5 MG, 1X/DAY
     Dates: start: 20040722
  2. TESTOSTERONE [Concomitant]
     Dosage: 50 MG, 1X/DAY
     Route: 061
     Dates: start: 20070531
  3. ERGOCALCIFEROL [Concomitant]
     Dosage: 1000 IU, MONTHLY
     Route: 030
     Dates: start: 20070531

REACTIONS (2)
  - GLIOMA [None]
  - NEOPLASM RECURRENCE [None]
